FAERS Safety Report 4965836-7 (Version None)
Quarter: 2006Q2

REPORT INFORMATION
  Report Type: 
  Country: None (occurrence: None)
  Receive Date: 20060406
  Receipt Date: 20060406
  Transmission Date: 20061013
  Serious: Yes (Hospitalization)
  Sender: FDA-Public Use
  Company Number: None

PATIENT
  Age: 69 Year
  Sex: Male
  Weight: 78.5 kg

DRUGS (2)
  1. CEFAZOLIN [Suspect]
     Indication: ANTIBIOTIC PROPHYLAXIS
     Dosage: 1GM  ONE TIME  IV
     Route: 042
     Dates: start: 20060330, end: 20060330
  2. . [Concomitant]

REACTIONS (2)
  - INTUBATION [None]
  - UNEVALUABLE EVENT [None]
